FAERS Safety Report 9696830 (Version 1)
Quarter: 2013Q4

REPORT INFORMATION
  Report Type: Spontaneous
  Country: US (occurrence: US)
  Receive Date: 20131119
  Receipt Date: 20131119
  Transmission Date: 20140711
  Serious: No
  Sender: FDA-Public Use
  Company Number: US-GILEAD-2007-0013546

PATIENT
  Sex: Male
  Weight: 103.42 kg

DRUGS (17)
  1. LETAIRIS [Suspect]
     Indication: PULMONARY ARTERIAL HYPERTENSION
     Route: 048
     Dates: start: 20070816, end: 20070911
  2. REVATIO [Concomitant]
     Route: 048
  3. COUMADIN [Concomitant]
     Route: 048
  4. COREG [Concomitant]
     Route: 048
  5. DIGOXIN [Concomitant]
     Route: 048
  6. TORSEMIDE [Concomitant]
     Route: 048
  7. CAPTOPRIL [Concomitant]
     Route: 048
  8. OXYGEN [Concomitant]
     Dosage: CONTINUOUS
     Route: 045
  9. SPIRIVA [Concomitant]
     Route: 055
  10. ADVAIR [Concomitant]
     Route: 055
  11. ALBUTEROL [Concomitant]
     Route: 055
  12. INSPRA [Concomitant]
     Route: 048
  13. LANTUS [Concomitant]
     Route: 058
  14. POTASSIUM CHLORIDE [Concomitant]
     Route: 048
  15. ASPIRIN [Concomitant]
     Route: 048
  16. LEVOTHYROXINE [Concomitant]
     Route: 048
  17. MAALOX MS LIQUID [Concomitant]
     Route: 048

REACTIONS (2)
  - Palpitations [Unknown]
  - Dyspnoea [Unknown]
